FAERS Safety Report 4818362-X (Version None)
Quarter: 2005Q4

REPORT INFORMATION
  Report Type: 
  Country: None (occurrence: None)
  Receive Date: 20051031
  Receipt Date: 20051020
  Transmission Date: 20060501
  Serious: Yes (Hospitalization, Other)
  Sender: FDA-Public Use
  Company Number: 2005-10-1154

PATIENT
  Age: 36 Year
  Sex: Female

DRUGS (3)
  1. PEG-INTERFERON ALFA-2B INJECTABLE [Suspect]
     Indication: HEPATITIS C
     Dosage: 100 MCG QWK SUBCUTANEOUS
     Route: 058
  2. RIBAVIRIN [Suspect]
     Indication: HEPATITIS C
     Dosage: 800 MG QD ORAL
     Route: 048
  3. L-THYROXINE SODIUM [Concomitant]

REACTIONS (14)
  - AGITATION [None]
  - AMNESIA [None]
  - ANTINUCLEAR ANTIBODY POSITIVE [None]
  - AUTOIMMUNE THYROIDITIS [None]
  - CONFUSIONAL STATE [None]
  - CSF PROTEIN INCREASED [None]
  - DIABETES MELLITUS INADEQUATE CONTROL [None]
  - DISORIENTATION [None]
  - ENCEPHALOPATHY [None]
  - GRAND MAL CONVULSION [None]
  - HALLUCINATION, VISUAL [None]
  - IMMUNOGLOBULINS INCREASED [None]
  - LETHARGY [None]
  - PANIC ATTACK [None]
